FAERS Safety Report 23317764 (Version 1)
Quarter: 2023Q4

REPORT INFORMATION
  Report Type: Spontaneous
  Country: US (occurrence: None)
  Receive Date: 20231219
  Receipt Date: 20231219
  Transmission Date: 20240110
  Serious: No
  Sender: FDA-Public Use
  Company Number: US-ROCHE-3215624

PATIENT
  Sex: Male
  Weight: 75.364 kg

DRUGS (1)
  1. GAZYVA [Suspect]
     Active Substance: OBINUTUZUMAB
     Indication: Chronic lymphocytic leukaemia
     Dosage: RECEIVED ONLY 25ML OF THE INFUSION ;ONGOING: NO
     Route: 042
     Dates: start: 20221107, end: 20221107

REACTIONS (3)
  - Dyspnoea [Unknown]
  - Flushing [Unknown]
  - Nausea [Unknown]

NARRATIVE: CASE EVENT DATE: 20221107
